FAERS Safety Report 9294639 (Version 2)
Quarter: 2013Q2

REPORT INFORMATION
  Report Type: Spontaneous
  Country: US (occurrence: US)
  Receive Date: 20130517
  Receipt Date: 20130606
  Transmission Date: 20140414
  Serious: No
  Sender: FDA-Public Use
  Company Number: US-PFIZER INC-2013151279

PATIENT
  Age: 47 Year
  Sex: 0

DRUGS (6)
  1. ZOLOFT [Suspect]
     Dosage: UNK
  2. NOVOLOG [Suspect]
     Dosage: UNK
  3. PREDNISONE [Suspect]
     Dosage: UNK
  4. ASA [Suspect]
     Dosage: UNK
  5. BENADRYL [Suspect]
     Dosage: UNK
  6. LEVEMIR [Suspect]
     Dosage: UNK

REACTIONS (1)
  - Drug hypersensitivity [Unknown]
